FAERS Safety Report 5534147-3 (Version None)
Quarter: 2007Q4

REPORT INFORMATION
  Report Type: 
  Country: None (occurrence: None)
  Receive Date: 20071130
  Receipt Date: 20071116
  Transmission Date: 20080405
  Serious: Yes (Hospitalization)
  Sender: FDA-Public Use
  Company Number: DSM-2007-00911

PATIENT
  Age: 38 Year
  Sex: Male
  Weight: 95 kg

DRUGS (1)
  1. OLMESARTAN MEDOXOMIL [Suspect]
     Indication: HYPERTENSION
     Dosage: 40 MG (40 MG, 1 IN 1 D) ORAL
     Route: 048
     Dates: start: 20071101, end: 20071117

REACTIONS (1)
  - ANGINA PECTORIS [None]
